FAERS Safety Report 9392328 (Version 1)
Quarter: 2013Q3

REPORT INFORMATION
  Report Type: Report from Study
  Country: CN (occurrence: CN)
  Receive Date: 20130710
  Receipt Date: 20130710
  Transmission Date: 20140515
  Serious: Yes (Death, Other)
  Sender: FDA-Public Use
  Company Number: CN-ROCHE-1245975

PATIENT
  Sex: 0

DRUGS (6)
  1. MYCOPHENOLATE MOFETIL [Suspect]
     Indication: PROPHYLAXIS AGAINST TRANSPLANT REJECTION
     Route: 065
  2. TACROLIMUS [Suspect]
     Indication: PROPHYLAXIS AGAINST TRANSPLANT REJECTION
     Route: 065
  3. CYCLOSPORINE [Suspect]
     Indication: PROPHYLAXIS AGAINST TRANSPLANT REJECTION
     Route: 065
  4. 5-FLUOROURACIL OR COMPARATOR [Concomitant]
     Indication: CHEMOTHERAPY
     Route: 065
  5. CISPLATIN [Concomitant]
     Indication: CHEMOTHERAPY
     Route: 065
  6. ADRIAMYCIN [Concomitant]
     Indication: CHEMOTHERAPY
     Route: 065

REACTIONS (3)
  - Lung infection [Fatal]
  - Respiratory failure [Fatal]
  - Metastases to bone [Unknown]
